FAERS Safety Report 8602563 (Version 2)
Quarter: 2014Q1

REPORT INFORMATION
  Report Type: Spontaneous
  Country: US (occurrence: None)
  Receive Date: 20120323
  Receipt Date: 20130305
  Transmission Date: 20141002
  Serious: Yes (Death, Hospitalization, Disabling)
  Sender: FDA-Public Use
  Company Number: 163-21880-11072282

PATIENT
  Age: 72 Year
  Sex: Male
  Weight: 81.63 kg

DRUGS (9)
  1. REVLIMID [Suspect]
     Indication: DIFFUSE LARGE B-CELL LYMPHOMA
     Dosage: 25 MG, QD X 21 DAYS, THEN 7 DAYS OFF, PO
     Route: 048
     Dates: start: 20110616, end: 20110731
  2. ZOFRAN [Concomitant]
  3. K-DUR (POTASSIUM CHLORIDE)(UNKNOWN) [Concomitant]
  4. DIFLUCAN [Concomitant]
  5. RESTORIL (TEMAZEPAM)(UNKNOWN) [Concomitant]
  6. ALLOPURINOL [Concomitant]
  7. CARDIZEM [Concomitant]
  8. ENSURE [Concomitant]
  9. RED BLOOD CELLS [Concomitant]

REACTIONS (5)
  - Urosepsis [None]
  - Dizziness [None]
  - Oedema peripheral [None]
  - Diarrhoea [None]
  - Asthenia [None]
